FAERS Safety Report 12642454 (Version 5)
Quarter: 2016Q4

REPORT INFORMATION
  Report Type: Spontaneous
  Country: US (occurrence: US)
  Receive Date: 20160810
  Receipt Date: 20161125
  Transmission Date: 20170207
  Serious: Yes (Other)
  Sender: FDA-Public Use
  Company Number: US-009507513-1608USA002962

PATIENT
  Age: 25 Year
  Sex: Female
  Weight: 63.04 kg

DRUGS (2)
  1. NEXPLANON [Suspect]
     Active Substance: ETONOGESTREL
     Dosage: UNK
     Route: 059
     Dates: start: 20160822
  2. NEXPLANON [Suspect]
     Active Substance: ETONOGESTREL
     Indication: CONTRACEPTION
     Dosage: 68 MG / 1 ROD EVERY 3 YEARS, LEFT UPPER ARM
     Route: 058
     Dates: start: 20160721, end: 20160725

REACTIONS (6)
  - Implant site erythema [Recovering/Resolving]
  - Migration of implanted drug [Recovered/Resolved]
  - Implant site pain [Recovering/Resolving]
  - Cellulitis [Recovered/Resolved]
  - Implant site infection [Recovered/Resolved]
  - Device expulsion [Recovered/Resolved]

NARRATIVE: CASE EVENT DATE: 2016
